FAERS Safety Report 9183951 (Version 1)
Quarter: 2013Q1

REPORT INFORMATION
  Report Type: Spontaneous
  Country: US (occurrence: US)
  Receive Date: 20130322
  Receipt Date: 20130322
  Transmission Date: 20140127
  Serious: Yes (Other)
  Sender: FDA-Public Use
  Company Number: US-BRISTOL-MYERS SQUIBB COMPANY-16673386

PATIENT
  Age: 82 Year
  Sex: Male
  Weight: 84.35 kg

DRUGS (4)
  1. ERBITUX [Suspect]
     Indication: COLON CANCER
     Dosage: LOADING DOSE 800MG
     Dates: start: 20120606, end: 201206
  2. BENADRYL [Concomitant]
     Indication: PREMEDICATION
  3. DEXAMETHASONE [Concomitant]
     Indication: PREMEDICATION
  4. ALOXI [Concomitant]
     Indication: PREMEDICATION

REACTIONS (1)
  - Infusion related reaction [Recovered/Resolved]
